FAERS Safety Report 9094565 (Version 1)
Quarter: 2013Q1

REPORT INFORMATION
  Report Type: Spontaneous
  Country: US (occurrence: US)
  Receive Date: 20130220
  Receipt Date: 20130220
  Transmission Date: 20140127
  Serious: No
  Sender: FDA-Public Use
  Company Number: US-009507513-1302USA007151

PATIENT
  Sex: Female

DRUGS (1)
  1. NASONEX [Suspect]
     Route: 045

REACTIONS (4)
  - Drug dose omission [Unknown]
  - Inappropriate schedule of drug administration [Unknown]
  - Product quality issue [Unknown]
  - No adverse event [Unknown]
